FAERS Safety Report 25733468 (Version 3)
Quarter: 2025Q4

REPORT INFORMATION
  Report Type: Spontaneous
  Country: US (occurrence: US)
  Receive Date: 20250828
  Receipt Date: 20251015
  Transmission Date: 20260117
  Serious: Yes (Other)
  Sender: DR REDDYS
  Company Number: None

PATIENT
  Age: 71 Year
  Sex: Female
  Weight: 76.6 kg

DRUGS (10)
  1. CAPECITABINE [Suspect]
     Active Substance: CAPECITABINE
     Indication: Anal squamous cell carcinoma
     Dosage: CAPECITABINE (1000 MG IN MORNING, 2000 MG IN EVENING) ORALLY
     Route: 048
  2. CAPECITABINE [Suspect]
     Active Substance: CAPECITABINE
     Indication: Papilloma viral infection
  3. CAPECITABINE [Suspect]
     Active Substance: CAPECITABINE
     Indication: Anal cancer stage II
  4. CAPECITABINE [Suspect]
     Active Substance: CAPECITABINE
     Indication: Anal papilloma
  5. CAPECITABINE [Suspect]
     Active Substance: CAPECITABINE
     Indication: Papilloma
  6. MITOMYCIN [Concomitant]
     Active Substance: MITOMYCIN
     Indication: Anal squamous cell carcinoma
  7. MITOMYCIN [Concomitant]
     Active Substance: MITOMYCIN
     Indication: Papilloma viral infection
  8. MITOMYCIN [Concomitant]
     Active Substance: MITOMYCIN
     Indication: Anal cancer stage II
  9. MITOMYCIN [Concomitant]
     Active Substance: MITOMYCIN
     Indication: Anal papilloma
  10. MITOMYCIN [Concomitant]
     Active Substance: MITOMYCIN
     Indication: Papilloma

REACTIONS (2)
  - Arteriospasm coronary [Recovered/Resolved]
  - Product use in unapproved indication [Unknown]
